FAERS Safety Report 7255376-7 (Version None)
Quarter: 2011Q1

REPORT INFORMATION
  Report Type: 
  Country: None (occurrence: None)
  Receive Date: 20110129
  Receipt Date: 20100302
  Transmission Date: 20110831
  Serious: Yes (Other)
  Sender: FDA-Public Use
  Company Number: US-ABBOTT-10P-163-0629951-00

PATIENT
  Sex: Female
  Weight: 90.8 kg

DRUGS (9)
  1. FOLIC ACID [Concomitant]
     Indication: VITAMIN SUPPLEMENTATION
     Route: 048
  2. HUMIRA [Suspect]
     Indication: RHEUMATOID ARTHRITIS
     Route: 058
     Dates: start: 20090101, end: 20090301
  3. HUMIRA [Suspect]
     Route: 058
     Dates: start: 20090301, end: 20091201
  4. HUMIRA [Suspect]
     Route: 058
     Dates: start: 20100228
  5. METHOTREXATE [Concomitant]
     Indication: RHEUMATOID ARTHRITIS
     Dosage: 0.6 ML QWEEK
     Route: 058
  6. VITAMIN D [Concomitant]
     Indication: RHEUMATOID ARTHRITIS
     Route: 048
  7. ESTRADIOL [Concomitant]
     Indication: HORMONE REPLACEMENT THERAPY
     Route: 048
  8. LIBRAX [Concomitant]
     Indication: OESOPHAGEAL SPASM
     Route: 048
  9. PAXIL [Concomitant]
     Indication: INSOMNIA
     Route: 048

REACTIONS (6)
  - SKIN ULCER [None]
  - PRURITUS [None]
  - SKIN EXFOLIATION [None]
  - HYPERHIDROSIS [None]
  - SQUAMOUS CELL CARCINOMA [None]
  - SINUSITIS [None]
